FAERS Safety Report 7437372-X (Version None)
Quarter: 2011Q2

REPORT INFORMATION
  Report Type: 
  Country: None (occurrence: None)
  Receive Date: 20110426
  Receipt Date: 20110415
  Transmission Date: 20111010
  Serious: Yes (Hospitalization, Other)
  Sender: FDA-Public Use
  Company Number: PHHY2011US32133

PATIENT
  Sex: Female
  Weight: 61 kg

DRUGS (10)
  1. ATENOLOL [Concomitant]
     Dosage: 50 MG, UNK
  2. LOPRESSOR [Suspect]
     Dosage: 50 MG, TWICE DAILY
     Dates: start: 20101223
  3. SYNTHROID [Concomitant]
     Dosage: 50 UNK, DAILY
  4. DILTIAZEM [Suspect]
     Dosage: 180 MG, DAILY
     Dates: end: 20101223
  5. MULTAQ [Suspect]
     Indication: ATRIAL FIBRILLATION
     Dosage: 400 MG, TWICE A DAY
     Route: 048
     Dates: start: 20101222, end: 20101228
  6. ASPIRIN [Concomitant]
     Dosage: 81 MG, DIALY
  7. COUMADIN [Concomitant]
  8. BENADRYL [Concomitant]
  9. VITAMIN D [Concomitant]
  10. VICODIN [Concomitant]
     Dosage: 5/500 MG 1-2 TABLETS EVERY 4-6 HOURS
     Route: 048

REACTIONS (9)
  - HYPERSENSITIVITY [None]
  - URTICARIA [None]
  - EYE SWELLING [None]
  - ARRHYTHMIA [None]
  - PALPITATIONS [None]
  - RASH PRURITIC [None]
  - PLEURAL EFFUSION [None]
  - FEELING HOT [None]
  - PERICARDIAL EFFUSION [None]
